FAERS Safety Report 5678288-9 (Version None)
Quarter: 2008Q1

REPORT INFORMATION
  Report Type: 
  Country: None (occurrence: None)
  Receive Date: 20080320
  Receipt Date: 20080228
  Transmission Date: 20080703
  Serious: Yes (Hospitalization)
  Sender: FDA-Public Use
  Company Number: 2008-0001

PATIENT
  Age: 30 Year
  Sex: Female

DRUGS (3)
  1. DEGREE WOMEN CLINICAL PROTECTION ANTI-PERSPIRANT AND DEODORANT [Suspect]
     Dosage: 3 WEEKS UNDERARM
  2. BI-POLAR MEDICATION [Concomitant]
  3. TYLENOL (CAPLET) [Concomitant]

REACTIONS (1)
  - RASH [None]
